FAERS Safety Report 20094817 (Version 1)
Quarter: 2021Q4

REPORT INFORMATION
  Report Type: Spontaneous
  Country: BR (occurrence: BR)
  Receive Date: 20211122
  Receipt Date: 20211122
  Transmission Date: 20220303
  Serious: Yes (Other)
  Sender: FDA-Public Use
  Company Number: BR-NOVOPROD-867253

PATIENT
  Age: 11 Year
  Sex: Female
  Weight: 30 kg

DRUGS (4)
  1. NORDITROPIN [Suspect]
     Active Substance: SOMATROPIN
     Dosage: 1.2 MG, QD
     Route: 065
  2. NORDITROPIN [Suspect]
     Active Substance: SOMATROPIN
     Indication: Product used for unknown indication
     Dosage: 1 MG, QD
     Route: 065
  3. HYDROCORTISONE [Concomitant]
     Active Substance: HYDROCORTISONE
     Dosage: 50 MG/M2, TID
     Route: 065
  4. HYDROCORTISONE [Concomitant]
     Active Substance: HYDROCORTISONE
     Dosage: OF 100 MG / M2
     Route: 065

REACTIONS (10)
  - Adrenal insufficiency [Unknown]
  - Disturbance in attention [Unknown]
  - Malaise [Unknown]
  - Hypotension [Unknown]
  - Hyperhidrosis [Unknown]
  - Somnolence [Unknown]
  - Epistaxis [Unknown]
  - Insulin-like growth factor decreased [Unknown]
  - Fatigue [Unknown]
  - Growth retardation [Unknown]
